FAERS Safety Report 5631572-7 (Version None)
Quarter: 2008Q1

REPORT INFORMATION
  Report Type: 
  Country: None (occurrence: None)
  Receive Date: 20080212
  Receipt Date: 20080207
  Transmission Date: 20080703
  Serious: Yes (Hospitalization, Other)
  Sender: FDA-Public Use
  Company Number: TPA2007A02365

PATIENT
  Age: 52 Year
  Sex: Female
  Weight: 138.3471 kg

DRUGS (15)
  1. ACTOS [Suspect]
     Indication: TYPE 2 DIABETES MELLITUS
     Dosage: 30 MG, QD, PER ORAL
     Route: 048
     Dates: start: 19990101, end: 20071116
  2. ASPIRIN [Concomitant]
  3. TRAZODONE HCL [Concomitant]
  4. CELEXA [Concomitant]
  5. HUMULIN 70/30 [Concomitant]
  6. COREG [Concomitant]
  7. FUROSEMIDE [Concomitant]
  8. KLOR-CON [Concomitant]
  9. ISOSORBIDE (ISOSORBIDE) [Concomitant]
  10. ZETIA [Concomitant]
  11. METOLAZONE [Concomitant]
  12. RANEXA (RANOLAZINE) [Concomitant]
  13. NITROSTATE (GLYCERYL, TRINITRATE) [Concomitant]
  14. TRAMADOL HCL [Concomitant]
  15. ALTACE [Concomitant]

REACTIONS (7)
  - CARDIAC FAILURE CONGESTIVE [None]
  - CEREBROVASCULAR ACCIDENT [None]
  - FALL [None]
  - FOOT FRACTURE [None]
  - KETOACIDOSIS [None]
  - MYOCARDIAL INFARCTION [None]
  - WEIGHT INCREASED [None]
